FAERS Safety Report 24025788 (Version 3)
Quarter: 2024Q3

REPORT INFORMATION
  Report Type: Report from Study
  Country: BE (occurrence: BE)
  Receive Date: 20240628
  Receipt Date: 20240710
  Transmission Date: 20241017
  Serious: No
  Sender: ROCHE
  Company Number: BE-ROCHE-3453789

PATIENT
  Age: 86 Year
  Sex: Female
  Weight: 47.0 kg

DRUGS (11)
  1. ALECTINIB [Suspect]
     Active Substance: ALECTINIB
     Indication: Lung cancer metastatic
     Route: 048
     Dates: start: 20230406
  2. ALECTINIB [Suspect]
     Active Substance: ALECTINIB
     Indication: Lung cancer metastatic
  3. LEVOTHYROXINE [Concomitant]
     Active Substance: LEVOTHYROXINE\LEVOTHYROXINE SODIUM
     Route: 048
     Dates: start: 20121114, end: 20230710
  4. LEVOTHYROXINE [Concomitant]
     Active Substance: LEVOTHYROXINE\LEVOTHYROXINE SODIUM
     Route: 048
     Dates: start: 20230711
  5. ASPIRIN [Concomitant]
     Active Substance: ASPIRIN
     Route: 048
  6. HYDREA [Concomitant]
     Active Substance: HYDROXYUREA
     Route: 048
     Dates: start: 20111130
  7. CHOLECALCIFEROL [Concomitant]
     Active Substance: CHOLECALCIFEROL
     Route: 048
     Dates: start: 20140507
  8. LASIX [Concomitant]
     Active Substance: FUROSEMIDE
     Route: 048
     Dates: start: 202209, end: 20240214
  9. COVID VACCINE (UNKNOWN) [Concomitant]
     Dosage: FREQUENCY TEXT:PRN
     Route: 030
     Dates: start: 202310, end: 202310
  10. COVID VACCINE (UNKNOWN) [Concomitant]
     Route: 030
     Dates: start: 20231114, end: 20231114
  11. ALECTINIB [Concomitant]
     Active Substance: ALECTINIB
     Indication: Lung neoplasm malignant
     Route: 065
     Dates: start: 20210512

REACTIONS (4)
  - Back pain [Recovered/Resolved]
  - Biliary colic [Recovered/Resolved]
  - Vomiting [Recovered/Resolved]
  - Cholestasis [Not Recovered/Not Resolved]

NARRATIVE: CASE EVENT DATE: 20230801
